FAERS Safety Report 24154715 (Version 1)
Quarter: 2024Q3

REPORT INFORMATION
  Report Type: Spontaneous
  Country: IT (occurrence: IT)
  Receive Date: 20240731
  Receipt Date: 20240731
  Transmission Date: 20241016
  Serious: Yes (Hospitalization, Other)
  Sender: SINOTHERAPEUTICS
  Company Number: IT-SNT-000403

PATIENT
  Age: 25 Year
  Sex: Male

DRUGS (1)
  1. MESALAMINE [Suspect]
     Active Substance: MESALAMINE
     Indication: Product use in unapproved indication
     Dosage: MESALAZINE 400 MG BIS IN DIE
     Route: 065

REACTIONS (3)
  - Symptom recurrence [Recovered/Resolved]
  - Myocarditis [Recovered/Resolved]
  - Off label use [Unknown]
